FAERS Safety Report 10058456 (Version 1)
Quarter: 2014Q2

REPORT INFORMATION
  Report Type: Spontaneous
  Country: IT (occurrence: IT)
  Receive Date: 20140404
  Receipt Date: 20140404
  Transmission Date: 20141212
  Serious: Yes (Death)
  Sender: FDA-Public Use
  Company Number: IT-OTSUKA-EU-2014-10103

PATIENT
  Age: 72 Year
  Sex: Male

DRUGS (7)
  1. SAMSCA [Suspect]
     Indication: INAPPROPRIATE ANTIDIURETIC HORMONE SECRETION
     Dosage: 15 MG MILLIGRAM(S), DAILY DOSE
     Route: 048
     Dates: start: 20121027, end: 20121104
  2. SAMSCA [Suspect]
     Dosage: 15 MG MILLIGRAM(S), DAILY DOSE
     Route: 048
     Dates: start: 20121108, end: 20121111
  3. SAMSCA [Suspect]
     Dosage: 30 MG MILLIGRAM(S), DAILY DOSE
     Route: 048
     Dates: start: 20121112, end: 20121115
  4. SAMSCA [Suspect]
     Dosage: 15 MG MILLIGRAM(S), DAILY DOSE
     Route: 048
     Dates: start: 20121116, end: 201308
  5. LEVOTHYROXINE [Concomitant]
     Indication: HYPOTHYROIDISM
     Dosage: 50 MCG, UNKNOWN
     Route: 065
  6. ETOPOSIDE [Concomitant]
     Indication: SMALL CELL LUNG CANCER
     Dosage: UNK, UNKNOWN
     Route: 065
     Dates: start: 201208
  7. CARBOPLATIN [Concomitant]
     Indication: SMALL CELL LUNG CANCER
     Dosage: UNK, UNKNOWN
     Route: 065
     Dates: start: 201208

REACTIONS (7)
  - Disease progression [Fatal]
  - Lung disorder [Fatal]
  - Thirst [Unknown]
  - Polydipsia [Unknown]
  - Polyuria [Unknown]
  - Rash [Recovered/Resolved]
  - Pruritus [Unknown]
